FAERS Safety Report 22685413 (Version 2)
Quarter: 2025Q4

REPORT INFORMATION
  Report Type: Spontaneous
  Country: EU (occurrence: EU)
  Receive Date: 20230710
  Receipt Date: 20251227
  Transmission Date: 20260118
  Serious: Yes (Disabling, Other)
  Sender: AUROBINDO
  Company Number: EU-KRKA-PL2021K11039LIT

PATIENT
  Age: 68 Year
  Sex: Female

DRUGS (13)
  1. ALPRAZOLAM [Suspect]
     Active Substance: ALPRAZOLAM
     Indication: Depression
     Dosage: 1 MILLIGRAM, ONCE A DAY(0.5 MG, 2X PER DAY)
     Route: 065
  2. ETORICOXIB [Suspect]
     Active Substance: ETORICOXIB
     Indication: Pain
     Dosage: UNK
     Route: 065
  3. METOPROLOL [Suspect]
     Active Substance: METOPROLOL
     Indication: Depression
     Dosage: 100 MILLIGRAM, ONCE A DAY(100 MG, PER DAY)
     Route: 065
  4. PREGABALIN [Suspect]
     Active Substance: PREGABALIN
     Indication: Pain
     Dosage: UNK
     Route: 065
  5. BROMFENAC [Suspect]
     Active Substance: BROMFENAC
     Indication: Eye pain
     Dosage: EYE DROPS
     Route: 065
  6. CELECOXIB [Interacting]
     Active Substance: CELECOXIB
     Indication: Inflammation
     Dosage: 400 MILLIGRAM, ONCE A DAY(400 MG, PER DAY)
     Route: 065
  7. CELECOXIB [Interacting]
     Active Substance: CELECOXIB
     Indication: Arthritis
  8. CIPROFLOXACIN [Interacting]
     Active Substance: CIPROFLOXACIN
     Indication: Inflammation
     Dosage: 1000 MILLIGRAM, ONCE A DAY(1000 MG, PER DAY)
     Route: 065
  9. CIPROFLOXACIN [Interacting]
     Active Substance: CIPROFLOXACIN
     Indication: Arthritis infective
  10. CIPROFLOXACIN [Interacting]
     Active Substance: CIPROFLOXACIN
     Indication: Arthritis
  11. DEXAMETHASONE [Suspect]
     Active Substance: DEXAMETHASONE
     Indication: Eye pain
     Dosage: EYE DROPS
     Route: 065
  12. DULOXETINE [Interacting]
     Active Substance: DULOXETINE
     Indication: Depression
     Dosage: 60 MILLIGRAM, ONCE A DAY(60 MG, PER DAY)
     Route: 065
  13. GENTAMICIN [Suspect]
     Active Substance: GENTAMICIN
     Indication: Eye pain
     Dosage: EYE DROPS
     Route: 065

REACTIONS (12)
  - Drug interaction [Recovered/Resolved]
  - Visual field defect [Recovered/Resolved]
  - Eye irritation [Recovered/Resolved]
  - Hallucination, visual [Recovered/Resolved]
  - Eye pain [Recovered/Resolved]
  - Drug ineffective [Recovered/Resolved]
  - Hyperhidrosis [Recovered/Resolved]
  - Excessive eye blinking [Unknown]
  - Contraindicated product administered [Recovered/Resolved]
  - Vitreous floaters [Recovered/Resolved]
  - Primary stabbing headache [Unknown]
  - Dyschromatopsia [Recovered/Resolved]
